FAERS Safety Report 13185065 (Version 1)
Quarter: 2017Q1

REPORT INFORMATION
  Report Type: Spontaneous
  Country: JP (occurrence: JP)
  Receive Date: 20170203
  Receipt Date: 20170203
  Transmission Date: 20170428
  Serious: Yes (Other)
  Sender: FDA-Public Use
  Company Number: JP-MYLANLABS-2017M1005537

PATIENT

DRUGS (1)
  1. PREDNISOLONE. [Suspect]
     Active Substance: PREDNISOLONE
     Indication: TEMPORAL ARTERITIS
     Dosage: 15 MG/DAY
     Route: 048

REACTIONS (4)
  - Brain oedema [Recovered/Resolved]
  - Brain compression [Recovered/Resolved]
  - Hydrocephalus [Recovered/Resolved]
  - Vertebrobasilar insufficiency [Recovered/Resolved]
